FAERS Safety Report 16019179 (Version 3)
Quarter: 2019Q3

REPORT INFORMATION
  Report Type: Spontaneous
  Country: US (occurrence: US)
  Receive Date: 20190228
  Receipt Date: 20190816
  Transmission Date: 20191004
  Serious: Yes (Death, Other)
  Sender: FDA-Public Use
  Company Number: US-ASTRAZENECA-2019SE10175

PATIENT
  Sex: Male

DRUGS (10)
  1. CLONAZEPAM. [Concomitant]
     Active Substance: CLONAZEPAM
     Route: 065
  2. PRILOSEC OTC [Suspect]
     Active Substance: OMEPRAZOLE MAGNESIUM
     Route: 048
     Dates: start: 201001
  3. BUPROPION. [Concomitant]
     Active Substance: BUPROPION
     Route: 065
  4. FLUOXETINE [Concomitant]
     Active Substance: FLUOXETINE HYDROCHLORIDE
     Route: 065
  5. ALBUTEROL. [Concomitant]
     Active Substance: ALBUTEROL
     Route: 065
  6. METOPROLOL. [Concomitant]
     Active Substance: METOPROLOL
     Route: 065
  7. PRILOSEC OTC [Suspect]
     Active Substance: OMEPRAZOLE MAGNESIUM
     Dosage: FOR MULTIPLE AND VARIOUS YEARS
     Route: 048
  8. ADVAIR HFA [Concomitant]
     Active Substance: FLUTICASONE PROPIONATE\SALMETEROL XINAFOATE
  9. CARBAMAZEPINE. [Concomitant]
     Active Substance: CARBAMAZEPINE
     Route: 065
  10. PREDNISONE. [Concomitant]
     Active Substance: PREDNISONE
     Route: 065

REACTIONS (6)
  - Chronic kidney disease [Unknown]
  - Death [Fatal]
  - Renal injury [Unknown]
  - Rebound acid hypersecretion [Unknown]
  - Acute kidney injury [Unknown]
  - Renal failure [Unknown]
